FAERS Safety Report 4496932-9 (Version None)
Quarter: 2004Q4

REPORT INFORMATION
  Report Type: 
  Country: None (occurrence: None)
  Receive Date: 20041109
  Receipt Date: 20041006
  Transmission Date: 20050328
  Serious: Yes (Life-Threatening, Hospitalization, Disabling, Other)
  Sender: FDA-Public Use
  Company Number: US-MERCK-0410USA00958

PATIENT
  Age: 78 Year
  Sex: Female
  Weight: 47 kg

DRUGS (6)
  1. VIOXX [Suspect]
     Indication: OSTEOARTHRITIS
     Route: 048
     Dates: start: 20030101, end: 20040826
  2. ACTONEL [Concomitant]
     Indication: OSTEOPOROSIS
     Route: 048
  3. NORVASC [Concomitant]
     Indication: HYPERTENSION
     Route: 048
  4. ATENOLOL [Concomitant]
     Indication: HYPERTENSION
     Route: 048
  5. SYNTHROID [Concomitant]
     Indication: HYPOTHYROIDISM
     Route: 048
  6. PREMARIN [Concomitant]
     Indication: MENOPAUSE
     Route: 048
     Dates: end: 20040826

REACTIONS (1)
  - CEREBROVASCULAR ACCIDENT [None]
